FAERS Safety Report 23639419 (Version 3)
Quarter: 2024Q2

REPORT INFORMATION
  Report Type: Spontaneous
  Country: US (occurrence: US)
  Receive Date: 20240316
  Receipt Date: 20240404
  Transmission Date: 20240716
  Serious: Yes (Hospitalization, Other)
  Sender: FDA-Public Use
  Company Number: US-GLENMARK PHARMACEUTICALS-2024GMK089348

PATIENT

DRUGS (4)
  1. OXCARBAZEPINE [Suspect]
     Active Substance: OXCARBAZEPINE
     Indication: Affective disorder
     Dosage: UNK
     Route: 065
  2. D-METHYLPHENIDATE HYDROCHLORIDE [Concomitant]
     Indication: Affective disorder
     Dosage: 20 MILLIGRAM, OD (EXTENDED-RELEASE, EACH MORNING)
     Route: 065
  3. D-METHYLPHENIDATE HYDROCHLORIDE [Concomitant]
     Indication: Seasonal allergy
  4. D-METHYLPHENIDATE HYDROCHLORIDE [Concomitant]
     Indication: Attention deficit hyperactivity disorder

REACTIONS (4)
  - Conjunctival hyperaemia [Recovering/Resolving]
  - Stevens-Johnson syndrome [Recovering/Resolving]
  - Drug reaction with eosinophilia and systemic symptoms [Recovering/Resolving]
  - Off label use [Unknown]
